FAERS Safety Report 5750159-9 (Version None)
Quarter: 2008Q2

REPORT INFORMATION
  Report Type: 
  Country: None (occurrence: None)
  Receive Date: 20080527
  Receipt Date: 20080515
  Transmission Date: 20081010
  Serious: Yes (Hospitalization)
  Sender: FDA-Public Use
  Company Number: ES-GILEAD-2008-0016526

PATIENT
  Sex: Male

DRUGS (2)
  1. TRUVADA [Suspect]
  2. KALETRA [Concomitant]

REACTIONS (5)
  - ASTHENIA [None]
  - DIARRHOEA [None]
  - FEELING ABNORMAL [None]
  - PYREXIA [None]
  - RASH PRURITIC [None]
